FAERS Safety Report 13613157 (Version 1)
Quarter: 2017Q2

REPORT INFORMATION
  Report Type: Report from Study
  Country: US (occurrence: US)
  Receive Date: 20170605
  Receipt Date: 20170605
  Transmission Date: 20170830
  Serious: Yes (Other)
  Sender: FDA-Public Use
  Company Number: US-BAYER-2017-059677

PATIENT
  Age: 52 Year
  Sex: Female

DRUGS (3)
  1. STIVARGA [Suspect]
     Active Substance: REGORAFENIB
     Indication: BRAIN NEOPLASM MALIGNANT
     Dosage: 160 MG, QD  FOR 21 DAYS
     Route: 048
     Dates: start: 201703, end: 20170510
  2. STIVARGA [Suspect]
     Active Substance: REGORAFENIB
     Indication: BRAIN NEOPLASM MALIGNANT
     Dosage: 160 MG, QD
     Route: 048
     Dates: start: 20170316
  3. STIVARGA [Suspect]
     Active Substance: REGORAFENIB
     Indication: BRAIN NEOPLASM MALIGNANT
     Dosage: 80 MG, BID
     Route: 048
     Dates: start: 201703

REACTIONS (16)
  - Paraesthesia [None]
  - Blister [None]
  - Off label use [None]
  - Burning sensation [None]
  - Hypoaesthesia [None]
  - Pain in extremity [None]
  - Abasia [None]
  - Blood pressure increased [None]
  - Palmar-plantar erythrodysaesthesia syndrome [None]
  - Paraesthesia [None]
  - Paraesthesia [None]
  - Hypertension [None]
  - Haemoglobin decreased [None]
  - Hypoaesthesia [None]
  - Blood pressure increased [None]
  - Fatigue [None]

NARRATIVE: CASE EVENT DATE: 2017
